FAERS Safety Report 24609603 (Version 1)
Quarter: 2024Q4

REPORT INFORMATION
  Report Type: Spontaneous
  Country: CA (occurrence: CA)
  Receive Date: 20241112
  Receipt Date: 20241112
  Transmission Date: 20250115
  Serious: Yes (Other)
  Sender: SANOFI AVENTIS
  Company Number: CA-SA-2024SA325175

PATIENT
  Age: 75 Year
  Sex: Female
  Weight: 98 kg

DRUGS (5)
  1. TOUJEO [Suspect]
     Active Substance: INSULIN GLARGINE
     Indication: Type 2 diabetes mellitus
     Dosage: 35 IU, BID
     Route: 058
  2. APO GLICLAZIDE [Concomitant]
  3. ASPIRIN [Concomitant]
     Active Substance: ASPIRIN
  4. GLICLAZIDE [Concomitant]
     Active Substance: GLICLAZIDE
  5. VITAMIN D NOS [Concomitant]
     Active Substance: CHOLECALCIFEROL\ERGOCALCIFEROL

REACTIONS (16)
  - Abdominal distension [Unknown]
  - Abdominal pain [Unknown]
  - Abdominal pain upper [Unknown]
  - Chills [Unknown]
  - Diarrhoea [Unknown]
  - Drug intolerance [Unknown]
  - Dysstasia [Unknown]
  - Fear of death [Unknown]
  - Headache [Unknown]
  - Nausea [Unknown]
  - Panic reaction [Unknown]
  - Tremor [Unknown]
  - Vomiting [Unknown]
  - Therapy change [Unknown]
  - Pruritus [Unknown]
  - Blood glucose increased [Unknown]
